FAERS Safety Report 21850329 (Version 2)
Quarter: 2023Q1

REPORT INFORMATION
  Report Type: Spontaneous
  Country: US (occurrence: US)
  Receive Date: 20230111
  Receipt Date: 20230213
  Transmission Date: 20230418
  Serious: No
  Sender: FDA-Public Use
  Company Number: US-BoehringerIngelheim-2023-BI-211700

PATIENT
  Age: 76 Year
  Sex: Male

DRUGS (1)
  1. JARDIANCE [Suspect]
     Active Substance: EMPAGLIFLOZIN
     Indication: Type 2 diabetes mellitus
     Dates: start: 202206, end: 20230107

REACTIONS (2)
  - Fatigue [Recovering/Resolving]
  - Glycosylated haemoglobin abnormal [Recovered/Resolved]

NARRATIVE: CASE EVENT DATE: 20220601
